FAERS Safety Report 9194127 (Version 1)
Quarter: 2013Q1

REPORT INFORMATION
  Report Type: Spontaneous
  Country: US (occurrence: US)
  Receive Date: 20130327
  Receipt Date: 20130327
  Transmission Date: 20140127
  Serious: No
  Sender: FDA-Public Use
  Company Number: US-ASTRAZENECA-2013SE16149

PATIENT
  Age: 51 Year
  Sex: Male
  Weight: 104.3 kg

DRUGS (5)
  1. CRESTOR [Suspect]
     Indication: BLOOD CHOLESTEROL ABNORMAL
     Route: 048
     Dates: start: 201302
  2. CRESTOR [Suspect]
     Indication: ATHEROSCLEROSIS PROPHYLAXIS
     Route: 048
     Dates: start: 201302
  3. VITAMINS [Concomitant]
     Dosage: UNK
  4. ASPIRIN [Concomitant]
  5. SIMVASTATIN [Concomitant]

REACTIONS (8)
  - Pain [Recovering/Resolving]
  - Paraesthesia [Recovering/Resolving]
  - Palpitations [Recovering/Resolving]
  - Hypoaesthesia [Recovering/Resolving]
  - Night sweats [Recovering/Resolving]
  - Nightmare [Recovering/Resolving]
  - Abnormal dreams [Recovering/Resolving]
  - Pain in extremity [Recovering/Resolving]
